FAERS Safety Report 7965971-5 (Version None)
Quarter: 2011Q4

REPORT INFORMATION
  Report Type: 
  Country: None (occurrence: None)
  Receive Date: 20111208
  Receipt Date: 20111205
  Transmission Date: 20120403
  Serious: Yes (Other)
  Sender: FDA-Public Use
  Company Number: DK-PFIZER INC-2011140704

PATIENT
  Age: 34 Year
  Sex: Female

DRUGS (2)
  1. ZOLOFT [Suspect]
     Indication: ANXIETY
     Dosage: 50 MG, UNK
     Route: 048
     Dates: start: 20070323, end: 20110610
  2. ZOLOFT [Suspect]
     Dosage: 100 MG, UNK

REACTIONS (1)
  - ABORTION MISSED [None]
